FAERS Safety Report 16123910 (Version 2)
Quarter: 2019Q2

REPORT INFORMATION
  Report Type: Spontaneous
  Country: CA (occurrence: CA)
  Receive Date: 20190327
  Receipt Date: 20190412
  Transmission Date: 20190711
  Serious: Yes (Hospitalization)
  Sender: FDA-Public Use
  Company Number: CA-ACTELION-A-NJ2019-188105

PATIENT
  Sex: Female

DRUGS (9)
  1. POTASSIUM [Concomitant]
     Active Substance: POTASSIUM
  2. CARIPUL [Suspect]
     Active Substance: EPOPROSTENOL
     Indication: PULMONARY ARTERIAL HYPERTENSION
     Dosage: UNK
     Route: 042
     Dates: start: 20140909
  3. LASIX [Concomitant]
     Active Substance: FUROSEMIDE
  4. VOLIBRIS [Concomitant]
     Active Substance: AMBRISENTAN
  5. SPIRONOLACTONE. [Concomitant]
     Active Substance: SPIRONOLACTONE
  6. ADCIRCA [Concomitant]
     Active Substance: TADALAFIL
  7. CALCIUM [Concomitant]
     Active Substance: CALCIUM
  8. CARIPUL [Suspect]
     Active Substance: EPOPROSTENOL
     Dosage: 45000 NG
     Route: 042
  9. VITAMIN D3 [Concomitant]
     Active Substance: CHOLECALCIFEROL

REACTIONS (1)
  - Palpitations [Unknown]
